FAERS Safety Report 5522853-6 (Version None)
Quarter: 2007Q4

REPORT INFORMATION
  Report Type: 
  Country: None (occurrence: None)
  Receive Date: 20071119
  Receipt Date: 20071119
  Transmission Date: 20080405
  Serious: Yes (Death)
  Sender: FDA-Public Use
  Company Number: None

PATIENT
  Age: 40 Year
  Sex: Female
  Weight: 73.0291 kg

DRUGS (3)
  1. METHADONE HCL [Suspect]
     Indication: PAIN
     Dosage: 10 MG 4 TIMES A AY PO
     Route: 048
     Dates: start: 20061011, end: 20061012
  2. CLONOPIN 1 MG [Suspect]
     Indication: ANXIETY
     Dosage: 1 MG 4 TIMES A DAY PO
     Route: 048
     Dates: start: 20061011, end: 20061012
  3. CLONOPIN 1 MG [Suspect]
     Indication: ROAD TRAFFIC ACCIDENT
     Dosage: 1 MG 4 TIMES A DAY PO
     Route: 048
     Dates: start: 20061011, end: 20061012

REACTIONS (2)
  - DRUG TOXICITY [None]
  - MEDICATION ERROR [None]
